FAERS Safety Report 17065381 (Version 1)
Quarter: 2019Q4

REPORT INFORMATION
  Report Type: Spontaneous
  Country: US (occurrence: US)
  Receive Date: 20191122
  Receipt Date: 20191122
  Transmission Date: 20200122
  Serious: No
  Sender: FDA-Public Use
  Company Number: US-ASTRAZENECA-2019SF51657

PATIENT
  Age: 22000 Day
  Sex: Female

DRUGS (1)
  1. BYDUREON BCISE [Suspect]
     Active Substance: EXENATIDE
     Indication: TYPE 2 DIABETES MELLITUS
     Route: 058

REACTIONS (5)
  - Needle issue [Unknown]
  - Drug dose omission by device [Not Recovered/Not Resolved]
  - Abdominal distension [Not Recovered/Not Resolved]
  - Injection site nodule [Unknown]
  - Drug delivery system issue [Unknown]

NARRATIVE: CASE EVENT DATE: 20191023
